FAERS Safety Report 13620171 (Version 3)
Quarter: 2017Q2

REPORT INFORMATION
  Report Type: Report from Study
  Country: ES (occurrence: ES)
  Receive Date: 20170607
  Receipt Date: 20170615
  Transmission Date: 20170830
  Serious: No
  Sender: FDA-Public Use
  Company Number: ES-ROCHE-1944742

PATIENT
  Age: 83 Year
  Sex: Male
  Weight: 75 kg

DRUGS (1)
  1. VEMURAFENIB [Suspect]
     Active Substance: VEMURAFENIB
     Indication: MALIGNANT MELANOMA
     Route: 048

REACTIONS (1)
  - Blood lactate dehydrogenase increased [Unknown]
